FAERS Safety Report 17473768 (Version 2)
Quarter: 2020Q1

REPORT INFORMATION
  Report Type: Spontaneous
  Country: US (occurrence: US)
  Receive Date: 20200228
  Receipt Date: 20200313
  Transmission Date: 20200409
  Serious: Yes (Other)
  Sender: FDA-Public Use
  Company Number: US-ASTRAZENECA-2020SE22581

PATIENT
  Age: 14918 Day
  Sex: Male
  Weight: 66.2 kg

DRUGS (2)
  1. FASENRA [Suspect]
     Active Substance: BENRALIZUMAB
     Indication: ASTHMA
     Dosage: 30.0MG UNKNOWN
     Route: 058
     Dates: start: 20191001, end: 20200128
  2. SYMBICORT [Suspect]
     Active Substance: BUDESONIDE\FORMOTEROL FUMARATE DIHYDRATE
     Indication: ASTHMA
     Dosage: 160 MG UNKNOWN
     Route: 055
     Dates: start: 20180404

REACTIONS (2)
  - Muscle atrophy [Recovering/Resolving]
  - Muscle strength abnormal [Not Recovered/Not Resolved]

NARRATIVE: CASE EVENT DATE: 20200210
